FAERS Safety Report 19924439 (Version 1)
Quarter: 2021Q4

REPORT INFORMATION
  Report Type: Spontaneous
  Country: US (occurrence: US)
  Receive Date: 20211006
  Receipt Date: 20211006
  Transmission Date: 20220303
  Serious: No
  Sender: FDA-Public Use
  Company Number: US-GILEAD-2021-0551178

PATIENT
  Age: 55 Year
  Sex: Male

DRUGS (8)
  1. EPCLUSA [Suspect]
     Active Substance: SOFOSBUVIR\VELPATASVIR
     Indication: Chronic hepatitis C
     Dosage: 1 DOSAGE FORM, QD
     Route: 048
  2. LISINOPRIL [Concomitant]
     Active Substance: LISINOPRIL
  3. GABAPENTIN [Concomitant]
     Active Substance: GABAPENTIN
  4. POTASSIUM [Concomitant]
     Active Substance: POTASSIUM
  5. FUROSEMIDE [Concomitant]
     Active Substance: FUROSEMIDE
  6. LACTULOSE [Concomitant]
     Active Substance: LACTULOSE
  7. SPIRONOLACTONE [Concomitant]
     Active Substance: SPIRONOLACTONE
  8. VITAMIN C [Concomitant]
     Active Substance: ASCORBIC ACID

REACTIONS (2)
  - Malaise [Unknown]
  - Vomiting [Unknown]
